FAERS Safety Report 6522211-1 (Version None)
Quarter: 2009Q4

REPORT INFORMATION
  Report Type: 
  Country: None (occurrence: None)
  Receive Date: 20091229
  Receipt Date: 20091229
  Transmission Date: 20100525
  Serious: Yes (Hospitalization)
  Sender: FDA-Public Use
  Company Number: None

PATIENT
  Age: 71 Year
  Sex: Male
  Weight: 64.7 kg

DRUGS (2)
  1. WARFARIN [Suspect]
     Indication: DEEP VEIN THROMBOSIS
     Dosage: 7.5MG PO QD (HOME)
     Route: 048
  2. WARFARIN [Suspect]
     Indication: PULMONARY EMBOLISM
     Dosage: 7.5MG PO QD (HOME)
     Route: 048

REACTIONS (3)
  - CEREBRAL HAEMORRHAGE [None]
  - FALL [None]
  - INTERNATIONAL NORMALISED RATIO INCREASED [None]
